FAERS Safety Report 13042900 (Version 1)
Quarter: 2016Q4

REPORT INFORMATION
  Report Type: Spontaneous
  Country: US (occurrence: US)
  Receive Date: 20161219
  Receipt Date: 20161219
  Transmission Date: 20170207
  Serious: No
  Sender: FDA-Public Use
  Company Number: US-JAZZ-2016-US-022633

PATIENT
  Sex: Female

DRUGS (15)
  1. CHLORPHENIRAMINE. [Concomitant]
     Active Substance: CHLORPHENIRAMINE
  2. LISINOPRIL. [Concomitant]
     Active Substance: LISINOPRIL
  3. MODAFINIL. [Concomitant]
     Active Substance: MODAFINIL
  4. VITAMIN C [Concomitant]
     Active Substance: ASCORBIC ACID
  5. VITAMIN D3 [Concomitant]
     Active Substance: CHOLECALCIFEROL
  6. XYREM [Suspect]
     Active Substance: SODIUM OXYBATE
     Dosage: 4.5G, BID
     Route: 048
     Dates: start: 2016
  7. COENZYME Q10 [Concomitant]
     Active Substance: UBIDECARENONE
  8. VITAMIN B12 [Concomitant]
     Active Substance: CYANOCOBALAMIN
  9. XYREM [Suspect]
     Active Substance: SODIUM OXYBATE
     Indication: CATAPLEXY
     Dosage: DOSE ADJUSTMENT
     Route: 048
     Dates: start: 2016, end: 2016
  10. LIVALO [Concomitant]
     Active Substance: PITAVASTATIN CALCIUM
  11. XYREM [Suspect]
     Active Substance: SODIUM OXYBATE
     Indication: NARCOLEPSY
     Dosage: 2.25G, BID
     Route: 048
     Dates: start: 201609, end: 2016
  12. ASPIRIN. [Concomitant]
     Active Substance: ASPIRIN
  13. CARVEDILOL. [Concomitant]
     Active Substance: CARVEDILOL
  14. MELOXICAM. [Concomitant]
     Active Substance: MELOXICAM
  15. VITAMIN B [Concomitant]
     Active Substance: VITAMIN B

REACTIONS (3)
  - Nasopharyngitis [Not Recovered/Not Resolved]
  - Cough [Not Recovered/Not Resolved]
  - Enuresis [Unknown]
